FAERS Safety Report 9034584 (Version 3)
Quarter: 2013Q1

REPORT INFORMATION
  Report Type: Spontaneous
  Country: PL (occurrence: None)
  Receive Date: 20130111
  Receipt Date: 20130222
  Transmission Date: 20140127
  Serious: Yes (Hospitalization)
  Sender: FDA-Public Use
  Company Number: 2012-1621

PATIENT
  Age: 66 Year
  Sex: Male
  Weight: 98 kg

DRUGS (15)
  1. CARFILZOMIB [Suspect]
     Indication: PLASMA CELL MYELOMA
     Dosage: (42 MG,DAYS 1,2)
     Route: 042
     Dates: start: 20110816, end: 20110817
  2. LENALIDOMIDE (LENALIDOMIDE) (CAPSULE) (LENALIDOMIDE) [Suspect]
     Indication: PLASMA CELL MYELOMA
     Dosage: (25 MG,DAYS 1-21, EVERY 28 DAYS)
     Route: 048
     Dates: start: 20110816, end: 20111213
  3. DEXAMETHASONE (DEXAMETHASONE) [Suspect]
     Indication: PLASMA CELL MYELOMA
     Dosage: 5.7143 MG (40 MG,DAYS 1, 8, 15, 22, EVERY 28 DAYS)
     Dates: start: 20110816, end: 20111115
  4. ACICLOVIR [Concomitant]
  5. ACIDUM ACETILSALICYLICUM (ACETYLSALICYLIC ACID (ACETYLSALICYLIC ACID) [Concomitant]
  6. ALFACALCIDOL (ALFACALCIDOL) (ALFACALCIDOL) [Concomitant]
  7. ALLOPURINOLUM (ALLOPURINOL) (ALLOPURINOL) [Concomitant]
  8. AMYLODYPINUM (AMLODIPINE) (AMLODIPINE) [Concomitant]
  9. ATORVASTATIN (ATORVASTATIN CALCIUM) (ATORVASTATIN CALCIUM) [Concomitant]
  10. CALCIUM LACTOGLUKONATE (CALCIUM LACTATE) [Concomitant]
  11. KALII CHLORIDUM (POTASSIUM CHLORIDE) (POTASSIUM CHLORIDE) [Concomitant]
  12. LANSOPRASOLUM (LANSOPRAZOLE0 (LANSOPRAZOLE) [Concomitant]
  13. METOPROLOL (METOPROLOL) (METOPROLOL) [Concomitant]
  14. PAMIFOS (PAMIDRONATE DISODIUM) (PAMIDRONATE DISODIUM) [Concomitant]
  15. RAMIPRIL (RAMIPRIL) (RAMIPRIL) [Concomitant]

REACTIONS (2)
  - Enteritis [None]
  - Clostridium test positive [None]
